FAERS Safety Report 13694245 (Version 1)
Quarter: 2017Q2

REPORT INFORMATION
  Report Type: Spontaneous
  Country: US (occurrence: US)
  Receive Date: 20170627
  Receipt Date: 20170627
  Transmission Date: 20170830
  Serious: No
  Sender: FDA-Public Use
  Company Number: US-MYLANLABS-2016M1028728

PATIENT
  Sex: Female

DRUGS (1)
  1. HYDROXYCHLOROQUINE [Suspect]
     Active Substance: HYDROXYCHLOROQUINE
     Dosage: 200 MG, BID
     Route: 048
     Dates: start: 2016

REACTIONS (4)
  - Dyspnoea [Unknown]
  - Pain [Unknown]
  - Acne [Unknown]
  - Hypersensitivity [Unknown]
